FAERS Safety Report 8246305-8 (Version None)
Quarter: 2012Q1

REPORT INFORMATION
  Report Type: 
  Country: None (occurrence: None)
  Receive Date: 20120329
  Receipt Date: 20120329
  Transmission Date: 20120608
  Serious: Yes (Other)
  Sender: FDA-Public Use
  Company Number: None

PATIENT
  Age: 69 Year
  Sex: Female
  Weight: 58.514 kg

DRUGS (1)
  1. PROAIR HFA [Suspect]
     Indication: ASTHMA PROPHYLAXIS
     Dosage: 1 PUFF EVERY 6-8 HRS FOR SHORTNESS OF BREATH
     Route: 055
     Dates: start: 20111015, end: 20120310

REACTIONS (3)
  - INCORRECT DOSE ADMINISTERED BY DEVICE [None]
  - DYSPNOEA [None]
  - PRODUCT QUALITY ISSUE [None]
